FAERS Safety Report 7000391-1 (Version None)
Quarter: 2010Q3

REPORT INFORMATION
  Report Type: 
  Country: None (occurrence: None)
  Receive Date: 20100920
  Receipt Date: 20090724
  Transmission Date: 20110219
  Serious: No
  Sender: FDA-Public Use
  Company Number: US-ASTRAZENECA-2009SE06557

PATIENT
  Age: 16136 Day
  Sex: Female
  Weight: 90.3 kg

DRUGS (4)
  1. SEROQUEL [Suspect]
     Route: 048
     Dates: start: 20090622
  2. TEGRETOL [Concomitant]
  3. LEXAPRO [Concomitant]
  4. AMANTADINE [Concomitant]

REACTIONS (2)
  - LOCAL SWELLING [None]
  - SWELLING FACE [None]
